FAERS Safety Report 5902259-8 (Version None)
Quarter: 2008Q3

REPORT INFORMATION
  Report Type: 
  Country: None (occurrence: None)
  Receive Date: 20080929
  Receipt Date: 20080124
  Transmission Date: 20090109
  Serious: No
  Sender: FDA-Public Use
  Company Number: US-BAUSCH-2008BL000298

PATIENT
  Age: 53 Year
  Sex: Female

DRUGS (1)
  1. NEOMYCIN AND POLYMXIN B SULFATES AND HYDROCORTISONE [Suspect]
     Indication: OTITIS EXTERNA
     Route: 001
     Dates: start: 20080123

REACTIONS (4)
  - DRUG HYPERSENSITIVITY [None]
  - EAR DISCOMFORT [None]
  - EAR PAIN [None]
  - MEDICATION ERROR [None]
